FAERS Safety Report 23968904 (Version 3)
Quarter: 2024Q4

REPORT INFORMATION
  Report Type: Spontaneous
  Country: IN (occurrence: IN)
  Receive Date: 20240612
  Receipt Date: 20241211
  Transmission Date: 20250114
  Serious: Yes (Other)
  Sender: SANDOZ
  Company Number: IN-SANDOZ-SDZ2024IN048995

PATIENT
  Sex: Male

DRUGS (3)
  1. MYFORTIC [Suspect]
     Active Substance: MYCOPHENOLATE SODIUM
     Indication: Renal transplant
     Dosage: 360 MG, BID
     Route: 048
     Dates: start: 20230310
  2. TACROLIMUS [Suspect]
     Active Substance: TACROLIMUS
     Indication: Renal transplant
     Dosage: 1.5 MG, TWICE A DAY
     Route: 048
     Dates: start: 20230310
  3. TACROLIMUS [Suspect]
     Active Substance: TACROLIMUS
     Dosage: 2.5 MG, OTHER (1.25MG(M) 1MG (N)
     Route: 048

REACTIONS (16)
  - Haemorrhagic hepatic cyst [Unknown]
  - Congenital cystic kidney disease [Unknown]
  - Abdominal sepsis [Unknown]
  - Kidney infection [Unknown]
  - Acute kidney injury [Unknown]
  - Klebsiella infection [Unknown]
  - Toxicity to various agents [Unknown]
  - Kidney enlargement [Unknown]
  - Electrolyte imbalance [Unknown]
  - Blood creatinine increased [Unknown]
  - Abdominal pain [Unknown]
  - Abdominal distension [Unknown]
  - Urinary tract infection [Unknown]
  - Hypoalbuminaemia [Unknown]
  - Constipation [Unknown]
  - BK virus infection [Unknown]
